FAERS Safety Report 6886043-7 (Version None)
Quarter: 2010Q3

REPORT INFORMATION
  Report Type: 
  Country: None (occurrence: None)
  Receive Date: 20100729
  Receipt Date: 20090221
  Transmission Date: 20110219
  Serious: No
  Sender: FDA-Public Use
  Company Number: US-PFIZER INC-2009174376

PATIENT
  Sex: Male
  Weight: 79.4 kg

DRUGS (5)
  1. CELEBREX [Suspect]
     Indication: ARTHRITIS
     Dosage: UNK
     Dates: start: 20090212, end: 20090216
  2. COZAAR [Suspect]
     Dosage: UNK
     Dates: end: 20090216
  3. ACTOS [Suspect]
     Dosage: UNK
     Dates: end: 20090216
  4. PLAVIX [Concomitant]
     Dosage: UNK
  5. METFORMIN [Concomitant]
     Dosage: UNK

REACTIONS (1)
  - URTICARIA [None]
